FAERS Safety Report 6522318-9 (Version None)
Quarter: 2009Q4

REPORT INFORMATION
  Report Type: 
  Country: None (occurrence: None)
  Receive Date: 20091230
  Receipt Date: 20091222
  Transmission Date: 20100525
  Serious: Yes (Hospitalization)
  Sender: FDA-Public Use
  Company Number: B0614838A

PATIENT
  Sex: Male
  Weight: 31 kg

DRUGS (1)
  1. RELENZA [Suspect]
     Indication: INFLUENZA
     Dosage: 10MG TWICE PER DAY
     Route: 055
     Dates: start: 20091204

REACTIONS (2)
  - ALTERED STATE OF CONSCIOUSNESS [None]
  - FOAMING AT MOUTH [None]
